FAERS Safety Report 15920982 (Version 1)
Quarter: 2019Q1

REPORT INFORMATION
  Report Type: Spontaneous
  Country: NO (occurrence: NO)
  Receive Date: 20190205
  Receipt Date: 20190205
  Transmission Date: 20190417
  Serious: Yes (Hospitalization)
  Sender: FDA-Public Use
  Company Number: PHHY2019NO024661

PATIENT
  Age: 38 Year
  Sex: Female

DRUGS (2)
  1. COSENTYX [Suspect]
     Active Substance: SECUKINUMAB
     Indication: SPONDYLITIS
     Dosage: 150 MG, QMO, 150 MG ONCE A MONTH
     Route: 058
     Dates: start: 20171121, end: 20180612
  2. SALAZOPYRIN EN-TABS. [Concomitant]
     Active Substance: SULFASALAZINE
     Indication: SPONDYLITIS
     Route: 048
     Dates: start: 20171121, end: 20180612

REACTIONS (1)
  - Tachycardia paroxysmal [Recovered/Resolved]
